FAERS Safety Report 5956024-6 (Version None)
Quarter: 2008Q4

REPORT INFORMATION
  Report Type: 
  Country: None (occurrence: None)
  Receive Date: 20081112
  Receipt Date: 20081028
  Transmission Date: 20090506
  Serious: Yes (Other)
  Sender: FDA-Public Use
  Company Number: DSJ-2008-10977

PATIENT
  Age: 69 Year
  Sex: Female
  Weight: 51.5 kg

DRUGS (10)
  1. OLMESARTAN MEDOXOMIL [Suspect]
     Indication: HYPERTENSION
     Dosage: 10 MG (10 MG, 1 IN 1 D), PER ORAL, 20 MG (10 MG, 2 IN 1 D), PER ORAL
     Route: 048
     Dates: start: 20050620, end: 20061002
  2. OLMESARTAN MEDOXOMIL [Suspect]
     Indication: HYPERTENSION
     Dosage: 10 MG (10 MG, 1 IN 1 D), PER ORAL, 20 MG (10 MG, 2 IN 1 D), PER ORAL
     Route: 048
     Dates: start: 20061003, end: 20071126
  3. ASPIRIN [Suspect]
     Indication: PROPHYLAXIS
     Dosage: 100 MG (100 MG, 1 IN 1 D), PER ORAL
     Route: 048
     Dates: start: 20050722, end: 20070308
  4. CALCIUM CARBONATE (CALCIUM CARBONATE) [Concomitant]
  5. LASIX [Concomitant]
  6. FLUITRAN (TRICHLORMETHIAZIDE) (TRICHLORMETHIAZIDE) [Concomitant]
  7. AMLODIPINE [Concomitant]
  8. WYTENS (GUANABENZ ACETATE) (GUANABENZ ACETATE) [Concomitant]
  9. PURSENNIDE (SENNA ALEXANDRINA LEAF) (SENNA ALEXANDRINA LEAF) [Concomitant]
  10. ALFAROL (ALFACALCIDOL) (ALFACALCIDOL) [Concomitant]

REACTIONS (1)
  - THROMBOCYTOPENIA [None]
